FAERS Safety Report 6282198-6 (Version None)
Quarter: 2009Q3

REPORT INFORMATION
  Report Type: 
  Country: None (occurrence: None)
  Receive Date: 20090724
  Receipt Date: 20090715
  Transmission Date: 20100115
  Serious: Yes (Life-Threatening, Hospitalization)
  Sender: FDA-Public Use
  Company Number: FR-WYE-H10255109

PATIENT
  Sex: Male

DRUGS (20)
  1. CORDARONE [Suspect]
     Route: 048
     Dates: start: 20090507, end: 20090602
  2. CARDENSIEL [Interacting]
     Route: 048
     Dates: start: 20090515, end: 20090602
  3. AMBISOME [Interacting]
     Dosage: UNKNOWN
     Route: 042
     Dates: start: 20090422, end: 20090509
  4. AMBISOME [Interacting]
     Route: 042
     Dates: start: 20090519, end: 20090528
  5. AMBISOME [Interacting]
     Dosage: UNKNOWN
     Route: 042
     Dates: start: 20090101
  6. LASIX [Concomitant]
     Route: 048
     Dates: start: 20090503
  7. SUBUTEX [Concomitant]
     Route: 048
  8. NICOTINE [Concomitant]
     Route: 061
  9. ANCOTIL [Concomitant]
     Dosage: UNKNOWN
     Dates: start: 20090422, end: 20090509
  10. ANCOTIL [Concomitant]
     Dosage: UNKNOWN
     Dates: start: 20090602
  11. HEPARIN [Concomitant]
     Route: 042
     Dates: start: 20090429
  12. NEXIUM [Concomitant]
     Route: 048
     Dates: start: 20090429
  13. DAFALGAN [Concomitant]
     Route: 048
     Dates: start: 20090429
  14. TARDYFERON [Concomitant]
     Route: 048
     Dates: start: 20090429
  15. SPIRONOLACTONE [Concomitant]
     Route: 048
     Dates: start: 20090430
  16. ALPRAZOLAM [Concomitant]
     Route: 048
     Dates: start: 20090430
  17. DIFFU K [Concomitant]
     Dosage: UNKNOWN
     Route: 048
     Dates: start: 20090503, end: 20090524
  18. DIFFU K [Concomitant]
     Dosage: UNKNOWN
     Route: 048
     Dates: start: 20090530
  19. ACUPAN [Concomitant]
     Dosage: UNKNOWN
     Dates: start: 20090509, end: 20090527
  20. TRIFLUCAN [Interacting]
     Route: 042
     Dates: start: 20090514, end: 20090602

REACTIONS (5)
  - CARDIO-RESPIRATORY ARREST [None]
  - DRUG INTERACTION [None]
  - HYPOKALAEMIA [None]
  - MYOCLONIC EPILEPSY [None]
  - TORSADE DE POINTES [None]
